FAERS Safety Report 7769288-3 (Version None)
Quarter: 2011Q3

REPORT INFORMATION
  Report Type: 
  Country: None (occurrence: None)
  Receive Date: 20110922
  Receipt Date: 20110913
  Transmission Date: 20111222
  Serious: Yes (Disabling, Other)
  Sender: FDA-Public Use
  Company Number: US-ROCHE-798499

PATIENT
  Sex: Male
  Weight: 104.3 kg

DRUGS (5)
  1. POVIDONE IODINE [Concomitant]
  2. OFLOXACIN [Concomitant]
     Route: 047
  3. PROPARACAINE HCL [Concomitant]
  4. AVASTIN [Suspect]
     Dosage: DOSE 0.15 ML. INJECTION
     Route: 031
     Dates: start: 20110812, end: 20110815
  5. DROXAINE [Concomitant]

REACTIONS (5)
  - BLINDNESS [None]
  - PRODUCT QUALITY ISSUE [None]
  - VISION BLURRED [None]
  - EYE INFLAMMATION [None]
  - EYE PAIN [None]
